FAERS Safety Report 11325366 (Version 2)
Quarter: 2015Q3

REPORT INFORMATION
  Report Type: Spontaneous
  Country: DE (occurrence: DE)
  Receive Date: 20150730
  Receipt Date: 20150806
  Transmission Date: 20151125
  Serious: Yes (Life-Threatening, Hospitalization, Other)
  Sender: FDA-Public Use
  Company Number: DE-B.I. PHARMACEUTICALS,INC./RIDGEFIELD-2015-BI-39900DE

PATIENT
  Age: 77 Year
  Sex: Male

DRUGS (12)
  1. CARMEN [Concomitant]
     Active Substance: LERCANIDIPINE
     Indication: HYPERTENSION
     Dosage: 1 ANZ
     Route: 048
     Dates: start: 200412
  2. PANTOPRAZOLE SODIUM. [Concomitant]
     Active Substance: PANTOPRAZOLE SODIUM
     Indication: PRODUCT USED FOR UNKNOWN INDICATION
     Route: 065
  3. METFOGAMMA [Concomitant]
     Indication: PRODUCT USED FOR UNKNOWN INDICATION
     Dosage: 2 ANZ
     Route: 048
     Dates: start: 200404
  4. METFORMIN [Concomitant]
     Active Substance: METFORMIN HYDROCHLORIDE
     Indication: DIABETES MELLITUS
     Route: 065
  5. KREON [Concomitant]
     Active Substance: PANCRELIPASE
     Indication: PANCREATIC DISORDER
     Route: 065
  6. MICARDIS HCT [Suspect]
     Active Substance: HYDROCHLOROTHIAZIDE\TELMISARTAN
     Indication: HYPERTENSION
     Dosage: 1 ANZ
     Route: 048
     Dates: start: 200709, end: 20150722
  7. BAYOTENSIN AKUT [Concomitant]
     Indication: HYPERTENSION
     Route: 065
  8. MOXONIDIN [Concomitant]
     Active Substance: MOXONIDINE
     Indication: HYPERTENSION
     Route: 065
  9. UROSOFALK [Concomitant]
     Indication: BILIARY CIRRHOSIS
     Route: 065
  10. LANTUS [Concomitant]
     Active Substance: INSULIN GLARGINE
     Indication: DIABETES MELLITUS
     Route: 065
  11. SIMVAHEXAL [Concomitant]
     Active Substance: SIMVASTATIN
     Indication: PRODUCT USED FOR UNKNOWN INDICATION
     Dosage: 30 MG
     Route: 048
     Dates: start: 200402
  12. GLIMEPRID [Concomitant]
     Active Substance: GLIMEPIRIDE
     Indication: DIABETES MELLITUS
     Route: 065

REACTIONS (14)
  - Vertigo [Unknown]
  - Pancreatic carcinoma [Unknown]
  - Papilla of Vater stenosis [Not Recovered/Not Resolved]
  - Pancreatitis acute [Recovered/Resolved]
  - Nausea [Unknown]
  - Ocular icterus [Unknown]
  - Bile duct stenosis [Unknown]
  - Lipase increased [Unknown]
  - Cholangitis [Unknown]
  - Cholestasis [Not Recovered/Not Resolved]
  - Headache [Unknown]
  - Jaundice [Unknown]
  - Abdominal discomfort [Unknown]
  - Pancreatic mass [Recovered/Resolved]

NARRATIVE: CASE EVENT DATE: 201403
